FAERS Safety Report 9546533 (Version 1)
Quarter: 2013Q3

REPORT INFORMATION
  Report Type: Spontaneous
  Country: US (occurrence: US)
  Receive Date: 20130923
  Receipt Date: 20130923
  Transmission Date: 20140515
  Serious: Yes (Death)
  Sender: FDA-Public Use
  Company Number: US-ROCHE-1279177

PATIENT
  Age: 73 Year
  Sex: Male

DRUGS (2)
  1. XELODA [Suspect]
     Indication: OESOPHAGEAL CARCINOMA
     Dosage: 14 ON, 7 DAYS OFF, 2 BI
     Route: 065
  2. XELODA [Suspect]
     Indication: BONE CANCER

REACTIONS (1)
  - Disease progression [Fatal]
